FAERS Safety Report 6936939-2 (Version None)
Quarter: 2010Q3

REPORT INFORMATION
  Report Type: 
  Country: None (occurrence: None)
  Receive Date: 20100818
  Receipt Date: 20100809
  Transmission Date: 20110219
  Serious: Yes (Death)
  Sender: FDA-Public Use
  Company Number: CHL-10-AE-SIM-001

PATIENT
  Age: 80 Year
  Sex: 0

DRUGS (8)
  1. SIMVASTATIN [Suspect]
     Indication: ANGINA PECTORIS
     Dosage: 20-40MG, DAILY ~ 2 YEARS
  2. DANAZOL [Suspect]
     Indication: IDIOPATHIC THROMBOCYTOPENIC PURPURA
     Dosage: 200-600MG, DAILY ~ 4 MONTHS
  3. ASPIRIN [Concomitant]
  4. CLOPIDOGREL [Concomitant]
  5. RAMIPRIL [Concomitant]
  6. PANTOPRAZOLE [Concomitant]
  7. PREDNISONE [Concomitant]
  8. LONG ACTING INSULIN [Concomitant]

REACTIONS (17)
  - ASTHENIA [None]
  - CARDIAC FAILURE ACUTE [None]
  - CHEST PAIN [None]
  - CONTUSION [None]
  - ELECTROCARDIOGRAM ST-T SEGMENT ELEVATION [None]
  - FALL [None]
  - FATIGUE [None]
  - HAEMODIALYSIS [None]
  - HEAD INJURY [None]
  - INCREASED TENDENCY TO BRUISE [None]
  - MUSCLE SPASMS [None]
  - NAUSEA [None]
  - OEDEMA PERIPHERAL [None]
  - PAIN IN EXTREMITY [None]
  - PLATELET COUNT DECREASED [None]
  - RENAL FAILURE ACUTE [None]
  - RHABDOMYOLYSIS [None]
